FAERS Safety Report 4785712-2 (Version None)
Quarter: 2005Q3

REPORT INFORMATION
  Report Type: 
  Country: None (occurrence: None)
  Receive Date: 20050929
  Receipt Date: 20050915
  Transmission Date: 20060218
  Serious: Yes (Hospitalization, Other)
  Sender: FDA-Public Use
  Company Number: 206846

PATIENT
  Age: 61 Year
  Sex: Female

DRUGS (3)
  1. AVONEX [Suspect]
     Indication: MULTIPLE SCLEROSIS
     Dosage: 30 UG; QW; IM
     Route: 030
     Dates: start: 19990501
  2. AVONEX [Suspect]
     Indication: MULTIPLE SCLEROSIS
     Dosage: 30 UG; QW; IM
     Route: 030
  3. NORCO [Concomitant]

REACTIONS (19)
  - ANAEMIA [None]
  - ARTERIAL REPAIR [None]
  - DEHYDRATION [None]
  - DIARRHOEA [None]
  - FALL [None]
  - GASTROENTERITIS [None]
  - HAEMODIALYSIS [None]
  - HEAT EXHAUSTION [None]
  - HYPERKALAEMIA [None]
  - HYPONATRAEMIA [None]
  - LEUKOCYTOSIS [None]
  - LUMBAR VERTEBRAL FRACTURE [None]
  - METABOLIC ACIDOSIS [None]
  - NAUSEA [None]
  - PELVIC FRACTURE [None]
  - PELVIC HAEMATOMA [None]
  - RENAL FAILURE ACUTE [None]
  - RENAL FAILURE CHRONIC [None]
  - VOMITING [None]
